FAERS Safety Report 11617144 (Version 2)
Quarter: 2015Q4

REPORT INFORMATION
  Report Type: Spontaneous
  Country: DE (occurrence: DE)
  Receive Date: 20151009
  Receipt Date: 20151020
  Transmission Date: 20160304
  Serious: Yes (Hospitalization)
  Sender: FDA-Public Use
  Company Number: DE-BAYER-2015-426395

PATIENT
  Age: 37 Year
  Sex: Female
  Weight: 84 kg

DRUGS (1)
  1. MIRENA [Suspect]
     Active Substance: LEVONORGESTREL
     Dosage: 20 MCG/24HR, CONT
     Route: 015
     Dates: start: 20150723, end: 20150910

REACTIONS (4)
  - Haemorrhagic ovarian cyst [Not Recovered/Not Resolved]
  - Abdominal pain lower [Not Recovered/Not Resolved]
  - Product quality issue [None]
  - Ovarian adenoma [Not Recovered/Not Resolved]

NARRATIVE: CASE EVENT DATE: 20150903
